FAERS Safety Report 8869242 (Version 1)
Quarter: 2012Q4

REPORT INFORMATION
  Report Type: Spontaneous
  Country: US (occurrence: None)
  Receive Date: 20121024
  Receipt Date: 20121024
  Transmission Date: 20130627
  Serious: Yes (Death)
  Sender: FDA-Public Use
  Company Number: AUR-APL-2012-04532

PATIENT
  Age: 26 Year
  Sex: Male

DRUGS (6)
  1. CITALOPRAM (CITALOPRAM) [Suspect]
     Route: 042
  2. CAFFEINE [Suspect]
     Route: 042
  3. HEROIN (DIAMORPHINE) [Concomitant]
  4. PARACETAMOL (PARACETAMOL) [Concomitant]
  5. CODEINE (CODEINE) [Concomitant]
  6. MORPHINE [Concomitant]

REACTIONS (7)
  - Pulmonary oedema [None]
  - Pulmonary alveolar haemorrhage [None]
  - Myocardial infarction [None]
  - Toxicity to various agents [None]
  - Overdose [None]
  - Cardiotoxicity [None]
  - Cardiac failure acute [None]
